FAERS Safety Report 16665550 (Version 1)
Quarter: 2019Q3

REPORT INFORMATION
  Report Type: Spontaneous
  Country: ES (occurrence: ES)
  Receive Date: 20190803
  Receipt Date: 20190803
  Transmission Date: 20191004
  Serious: Yes (Other)
  Sender: FDA-Public Use
  Company Number: PHHY2019ES179700

PATIENT
  Age: 34 Year
  Sex: Female

DRUGS (2)
  1. TIRODRIL [Suspect]
     Active Substance: METHIMAZOLE
     Indication: HYPERTHYROIDISM
     Dosage: 5 MG, Q12H
     Route: 048
     Dates: start: 20190626, end: 20190717
  2. ATENOLOL. [Suspect]
     Active Substance: ATENOLOL
     Indication: HYPERTHYROIDISM
     Dosage: 50 MG, Q12H
     Route: 048
     Dates: start: 20190626

REACTIONS (1)
  - Agranulocytosis [Recovered/Resolved]

NARRATIVE: CASE EVENT DATE: 20190717
